FAERS Safety Report 8427538-4 (Version None)
Quarter: 2012Q2

REPORT INFORMATION
  Report Type: 
  Country: None (occurrence: None)
  Receive Date: 20120611
  Receipt Date: 20120529
  Transmission Date: 20120825
  Serious: Yes (Hospitalization, Other)
  Sender: FDA-Public Use
  Company Number: BR-NOVOPROD-352794

PATIENT
  Age: 45 Year
  Sex: Female

DRUGS (1)
  1. NOVORAPID PENFILL [Suspect]
     Indication: PRODUCT USED FOR UNKNOWN INDICATION
     Dosage: UNK

REACTIONS (2)
  - PAIN [None]
  - LOSS OF CONSCIOUSNESS [None]
